FAERS Safety Report 6361647-9 (Version None)
Quarter: 2009Q3

REPORT INFORMATION
  Report Type: 
  Country: None (occurrence: None)
  Receive Date: 20090918
  Receipt Date: 20090908
  Transmission Date: 20100115
  Serious: Yes (Other)
  Sender: FDA-Public Use
  Company Number: JP-PFIZER INC-2009262394

PATIENT
  Age: 51 Year

DRUGS (5)
  1. GABAPEN [Suspect]
     Dosage: UNK
     Route: 048
  2. BEROTEC [Suspect]
     Dosage: UNK
  3. FENTANYL [Suspect]
     Dosage: UNK
     Route: 062
  4. FAMOTIDINE [Suspect]
     Dosage: UNK
  5. ROPION [Suspect]
     Dosage: UNK
     Route: 042

REACTIONS (1)
  - TETANY [None]
